FAERS Safety Report 8817573 (Version 4)
Quarter: 2013Q1

REPORT INFORMATION
  Report Type: Spontaneous
  Country: US (occurrence: US)
  Receive Date: 20121002
  Receipt Date: 20130125
  Transmission Date: 20140127
  Serious: Yes (Death, Hospitalization)
  Sender: FDA-Public Use
  Company Number: US-ELI_LILLY_AND_COMPANY-US201209007042

PATIENT
  Sex: Male

DRUGS (13)
  1. FORTEO [Suspect]
     Indication: OSTEOPOROSIS
     Dosage: 20 UG, QD
     Dates: start: 20120807
  2. ENBREL [Concomitant]
     Dosage: 50 MG, WEEKLY (1/W)
  3. PREDNISONE [Concomitant]
     Dosage: 7.5 MG, QD
  4. METHOTREXATE [Concomitant]
     Dosage: 8 DF, WEEKLY (1/W)
  5. VITAMIN D [Concomitant]
     Dosage: 50000 U, WEEKLY (1/W)
  6. SIMVASTATIN [Concomitant]
     Dosage: 40 MG, UNK
  7. COUMADIN [Concomitant]
     Dosage: 7.5 MG, OTHER
  8. COUMADIN [Concomitant]
     Dosage: 5 MG, OTHER
  9. FOLIC ACID [Concomitant]
     Dosage: 1 MG, QD
  10. SOTALOL [Concomitant]
     Dosage: 120 MG, BID
  11. OXYCODONE [Concomitant]
     Dosage: 30 MG, EVERY 6 HRS
  12. OXYCONTIN [Concomitant]
     Dosage: 60 MG, EVERY 8 HRS
  13. COMBIVENT [Concomitant]
     Dosage: 2 DF, QID
     Route: 055

REACTIONS (8)
  - Haemorrhage [Fatal]
  - Fall [Fatal]
  - Injury [Fatal]
  - Arrhythmia [Unknown]
  - Bone pain [Not Recovered/Not Resolved]
  - Feeling abnormal [Unknown]
  - Headache [Unknown]
  - Blood pressure diastolic increased [Unknown]
